FAERS Safety Report 12884887 (Version 10)
Quarter: 2019Q2

REPORT INFORMATION
  Report Type: Spontaneous
  Country: US (occurrence: US)
  Receive Date: 20161026
  Receipt Date: 20190513
  Transmission Date: 20190711
  Serious: Yes (Hospitalization, Other)
  Sender: FDA-Public Use
  Company Number: US-PFIZER INC-2016491411

PATIENT
  Age: 59 Year
  Sex: Male
  Weight: 100 kg

DRUGS (32)
  1. LYRICA [Suspect]
     Active Substance: PREGABALIN
     Indication: DIABETIC NEUROPATHY
     Dosage: 75 MG, 2X/DAY
     Route: 048
  2. LYRICA [Suspect]
     Active Substance: PREGABALIN
     Dosage: 150 MG, 1X/DAY
     Route: 048
     Dates: start: 2013
  3. LYRICA [Suspect]
     Active Substance: PREGABALIN
     Dosage: 75 MG, 1X/DAY
     Route: 048
  4. AMLODIPINE [Concomitant]
     Active Substance: AMLODIPINE BESYLATE
     Indication: HYPERTENSION
     Dosage: 10 MG, DAILY
     Route: 048
     Dates: start: 201503
  5. OMEPRAZOLE. [Concomitant]
     Active Substance: OMEPRAZOLE
     Indication: ABDOMINAL DISCOMFORT
     Dosage: 20 MG, DAILY
     Route: 048
     Dates: start: 2008
  6. BAYER ASPIRIN [Concomitant]
     Active Substance: ASPIRIN
     Indication: CARDIAC DISORDER
     Dosage: 81 MG, DAILY
     Route: 048
     Dates: start: 201506
  7. LISINOPRIL. [Concomitant]
     Active Substance: LISINOPRIL
     Indication: HYPERTENSION
     Dosage: 40 MG, DAILY
     Route: 048
     Dates: start: 2014
  8. TAMSULOSIN [Concomitant]
     Active Substance: TAMSULOSIN
     Indication: PROSTATIC DISORDER
     Dosage: 0.4 MG, DAILY
     Route: 048
     Dates: start: 201503
  9. LEVOTHYROXINE. [Concomitant]
     Active Substance: LEVOTHYROXINE
     Indication: HYPOTHYROIDISM
     Dosage: 10 MCG OR 20 MCG
     Route: 048
     Dates: start: 2008
  10. LEFLUNOMIDE. [Concomitant]
     Active Substance: LEFLUNOMIDE
     Indication: ARTHRITIS
     Dosage: 20 MG, DAILY
     Route: 048
     Dates: start: 201506
  11. LYRICA [Suspect]
     Active Substance: PREGABALIN
     Indication: NEURALGIA
     Dosage: 75 MG, DAILY
     Route: 048
  12. HUMIRA [Suspect]
     Active Substance: ADALIMUMAB
     Indication: RHEUMATOID ARTHRITIS
     Dosage: UNK, (40 MG/0.8 ML SUBCUTANEOUS SYRINGE KIT, ONE INJECTION INTO THE BELLYEVERY TWO WEEKS)
     Route: 058
     Dates: start: 2015
  13. TIMOLOL MALEATE. [Concomitant]
     Active Substance: TIMOLOL MALEATE
     Indication: GLAUCOMA
     Dosage: 0.25%, DAILY
     Dates: start: 201604
  14. FISH OIL [Concomitant]
     Active Substance: FISH OIL
     Indication: CARDIAC DISORDER
     Dosage: 1200 MG, DAILY
     Route: 048
     Dates: start: 201506
  15. AMOXICILLIN. [Concomitant]
     Active Substance: AMOXICILLIN
     Dosage: 500 MG, UNK
  16. LYRICA [Suspect]
     Active Substance: PREGABALIN
     Indication: SPINAL OSTEOARTHRITIS
     Dosage: 75 MG, 1X/DAY
     Route: 048
  17. HUMIRA [Suspect]
     Active Substance: ADALIMUMAB
     Indication: OSTEOARTHRITIS
     Dosage: 40 MG, UNK (40 MG, 1 IN 2 WK))
     Route: 058
     Dates: start: 201502
  18. HUMIRA [Suspect]
     Active Substance: ADALIMUMAB
     Dosage: UNK
     Route: 058
  19. HYDROCODONE [Suspect]
     Active Substance: HYDROCODONE
     Indication: PAIN
     Dosage: UNK, AS NEEDED (7.5/325MG TWO O R THREE TABLETS DAI LY)
     Route: 048
     Dates: start: 20160823
  20. LATANOPROST. [Concomitant]
     Active Substance: LATANOPROST
     Dosage: 0.005 %, 1X/DAY (ONE DROP EACH EYE AT BEDTIME)
     Dates: start: 201508
  21. HUMIRA [Suspect]
     Active Substance: ADALIMUMAB
     Indication: ANKYLOSING SPONDYLITIS
     Dosage: 40 MG, UNK (40MG /0.8ML , 40 MG (1 IN 2 WK))
     Route: 058
     Dates: start: 20150304
  22. TAMSULOSIN [Concomitant]
     Active Substance: TAMSULOSIN
     Indication: BLADDER DISORDER
  23. MELOXICAM. [Concomitant]
     Active Substance: MELOXICAM
     Indication: INFLAMMATION
     Dosage: 15 MG, DAILY
     Route: 048
     Dates: start: 201506
  24. LATANOPROST. [Concomitant]
     Active Substance: LATANOPROST
     Indication: GLAUCOMA
     Dosage: 0.005%, ONE DROP EACH EYE, 2X/DAY
     Dates: start: 201508
  25. FLONASE [Concomitant]
     Active Substance: FLUTICASONE PROPIONATE
     Dosage: 50 UG, 1X/DAY (ONE SQUIRT INT O EACH NOSTRIL AT BEDTIME)
     Route: 045
     Dates: start: 201511
  26. HUMIRA [Suspect]
     Active Substance: ADALIMUMAB
     Dosage: UNK
     Route: 058
  27. HYDROCODONE/ACETAMINOPHEN [Concomitant]
     Active Substance: ACETAMINOPHEN\HYDROCODONE
     Indication: PAIN
     Dosage: AS NEEDED (7.5/325 MG TWO OR THREE TABLETS BY MOUTH)
     Route: 048
  28. LEVOTHYROXINE. [Concomitant]
     Active Substance: LEVOTHYROXINE
     Dosage: 50 UG, DAILY
     Route: 048
  29. FLONASE [Concomitant]
     Active Substance: FLUTICASONE PROPIONATE
     Indication: RHINITIS
     Dosage: 50 UG, 2X/DAY
     Route: 045
     Dates: start: 201511
  30. ATORVASTATIN [Concomitant]
     Active Substance: ATORVASTATIN
     Indication: CARDIAC DISORDER
     Dosage: 20 MG, DAILY
     Route: 048
     Dates: start: 201506
  31. MELOXICAM. [Concomitant]
     Active Substance: MELOXICAM
     Dosage: 15 MG, DAILY
     Route: 048
  32. POLYETHYLENE GLYCOL 3350. [Concomitant]
     Active Substance: POLYETHYLENE GLYCOL 3350
     Indication: CONSTIPATION
     Dosage: 17 G, DAILY
     Dates: start: 2008

REACTIONS (93)
  - Deafness unilateral [Not Recovered/Not Resolved]
  - Visual impairment [Not Recovered/Not Resolved]
  - Neuritis [Not Recovered/Not Resolved]
  - Dermatitis [Not Recovered/Not Resolved]
  - Insomnia [Unknown]
  - Food poisoning [Recovered/Resolved]
  - Musculoskeletal pain [Unknown]
  - Essential hypertension [Unknown]
  - Abdominal pain [Unknown]
  - Wrong technique in product usage process [Unknown]
  - Rheumatoid arthritis [Not Recovered/Not Resolved]
  - Abdominal discomfort [Recovered/Resolved]
  - Glaucoma [Not Recovered/Not Resolved]
  - Dry eye [Not Recovered/Not Resolved]
  - Spinal pain [Unknown]
  - Dyspepsia [Unknown]
  - Neuralgia [Not Recovered/Not Resolved]
  - Anxiety [Recovered/Resolved]
  - Hyperlipidaemia [Unknown]
  - Back pain [Not Recovered/Not Resolved]
  - Pain [Unknown]
  - Eye pruritus [Not Recovered/Not Resolved]
  - Sleep disorder [Not Recovered/Not Resolved]
  - Fatigue [Not Recovered/Not Resolved]
  - Intentional product misuse [Unknown]
  - Arthralgia [Not Recovered/Not Resolved]
  - Paraesthesia [Not Recovered/Not Resolved]
  - Pollakiuria [Unknown]
  - Diarrhoea [Recovered/Resolved]
  - Chest pain [Recovered/Resolved]
  - Arterial occlusive disease [Unknown]
  - Cardiac disorder [Unknown]
  - Benign prostatic hyperplasia [Unknown]
  - Arthralgia [Unknown]
  - Chorioretinopathy [Unknown]
  - Weight increased [Not Recovered/Not Resolved]
  - Costochondritis [Recovering/Resolving]
  - Spinal disorder [Unknown]
  - Pain [Not Recovered/Not Resolved]
  - Insomnia [Not Recovered/Not Resolved]
  - Obesity [Not Recovered/Not Resolved]
  - Pain in extremity [Unknown]
  - Sleep apnoea syndrome [Not Recovered/Not Resolved]
  - Hernia [Unknown]
  - Injection site haemorrhage [Recovered/Resolved]
  - Nasopharyngitis [Unknown]
  - Sinusitis [Unknown]
  - Open angle glaucoma [Not Recovered/Not Resolved]
  - Hyperthyroidism [Not Recovered/Not Resolved]
  - Microcytic anaemia [Unknown]
  - Carpal tunnel syndrome [Not Recovered/Not Resolved]
  - Disease progression [Unknown]
  - Arthralgia [Not Recovered/Not Resolved]
  - Electrocardiogram abnormal [Unknown]
  - Rhinitis [Recovered/Resolved]
  - Blood count abnormal [Unknown]
  - Pyrexia [Unknown]
  - Musculoskeletal disorder [Unknown]
  - Cerumen impaction [Not Recovered/Not Resolved]
  - Feeling hot [Recovered/Resolved]
  - Neck pain [Not Recovered/Not Resolved]
  - Deafness neurosensory [Not Recovered/Not Resolved]
  - Spinal osteoarthritis [Unknown]
  - Coronary artery occlusion [Unknown]
  - Spinal column injury [Unknown]
  - Bundle branch block left [Not Recovered/Not Resolved]
  - Coronary vein stenosis [Recovering/Resolving]
  - Eye irritation [Unknown]
  - Intervertebral disc degeneration [Unknown]
  - Dyspnoea [Unknown]
  - Hypoaesthesia [Not Recovered/Not Resolved]
  - Hypertension [Unknown]
  - Constipation [Recovered/Resolved]
  - Fibromyalgia [Unknown]
  - Therapeutic product effect incomplete [Unknown]
  - Osteogenesis imperfecta [Unknown]
  - Seronegative arthritis [Unknown]
  - Vision blurred [Not Recovered/Not Resolved]
  - Cataract [Unknown]
  - Blood cholesterol increased [Recovered/Resolved]
  - Joint swelling [Not Recovered/Not Resolved]
  - Feeling abnormal [Recovered/Resolved]
  - Arteriosclerosis coronary artery [Unknown]
  - Nasal septum deviation [Not Recovered/Not Resolved]
  - Poor peripheral circulation [Unknown]
  - Vertigo [Not Recovered/Not Resolved]
  - Nasal septum deviation [Unknown]
  - Sensitivity to weather change [Not Recovered/Not Resolved]
  - Malaise [Unknown]
  - Incorrect dose administered [Recovered/Resolved]
  - Facet joint syndrome [Not Recovered/Not Resolved]
  - Glucose tolerance impaired [Not Recovered/Not Resolved]
  - Headache [Not Recovered/Not Resolved]

NARRATIVE: CASE EVENT DATE: 2015
